FAERS Safety Report 4660936-3 (Version None)
Quarter: 2005Q2

REPORT INFORMATION
  Report Type: 
  Country: None (occurrence: None)
  Receive Date: 20050511
  Receipt Date: 20050503
  Transmission Date: 20051028
  Serious: No
  Sender: FDA-Public Use
  Company Number: 04P-163-0275784-00

PATIENT
  Age: 36 Year
  Sex: Female
  Weight: 52.1637 kg

DRUGS (8)
  1. SYNTHROID [Suspect]
     Indication: THYROID GLAND CANCER
     Dosage: 150 MCG, 1 IN 1 D, PER ORAL; SEE IMAGE
     Route: 048
     Dates: start: 19980101, end: 20010101
  2. SYNTHROID [Suspect]
     Indication: THYROID GLAND CANCER
     Dosage: 150 MCG, 1 IN 1 D, PER ORAL; SEE IMAGE
     Route: 048
     Dates: start: 20010101, end: 20040301
  3. SYNTHROID [Suspect]
     Indication: THYROID GLAND CANCER
     Dosage: 150 MCG, 1 IN 1 D, PER ORAL; SEE IMAGE
     Route: 048
     Dates: start: 20040301, end: 20040401
  4. SYNTHROID [Suspect]
     Indication: THYROID GLAND CANCER
     Dosage: 150 MCG, 1 IN 1 D, PER ORAL; SEE IMAGE
     Route: 048
     Dates: start: 20040401, end: 20040705
  5. SYNTHROID [Suspect]
     Indication: THYROID GLAND CANCER
     Dosage: 150 MCG, 1 IN 1 D, PER ORAL; SEE IMAGE
     Route: 048
     Dates: start: 20040706
  6. SYNTHROID [Suspect]
     Indication: THYROID GLAND CANCER
     Dosage: 150 MCG, 1 IN 1 D, PER ORAL; SEE IMAGE
     Route: 048
     Dates: start: 20041001
  7. PRENATE ELITE [Concomitant]
  8. ASPIRIN [Concomitant]

REACTIONS (5)
  - ABORTION SPONTANEOUS [None]
  - BLOOD THYROID STIMULATING HORMONE INCREASED [None]
  - DRUG EXPOSURE DURING PREGNANCY [None]
  - PREGNANCY [None]
  - PYREXIA [None]
